FAERS Safety Report 7299358-8 (Version None)
Quarter: 2011Q1

REPORT INFORMATION
  Report Type: 
  Country: None (occurrence: None)
  Receive Date: 20110217
  Receipt Date: 20110210
  Transmission Date: 20110831
  Serious: Yes (Death)
  Sender: FDA-Public Use
  Company Number: A0913534A

PATIENT
  Age: 50 Year
  Sex: Male

DRUGS (3)
  1. AMBIEN [Suspect]
     Indication: INSOMNIA
     Dosage: 10MG SEE DOSAGE TEXT
     Route: 048
     Dates: start: 20040101, end: 20100811
  2. LAMICTAL [Suspect]
     Indication: BIPOLAR DISORDER
     Dosage: 200MG PER DAY
  3. PRISTIQ [Suspect]
     Indication: BIPOLAR DISORDER
     Dosage: 50MG PER DAY
     Route: 065

REACTIONS (4)
  - COMPLETED SUICIDE [None]
  - MEMORY IMPAIRMENT [None]
  - CONFUSIONAL STATE [None]
  - ACCIDENTAL OVERDOSE [None]
